FAERS Safety Report 13953944 (Version 1)
Quarter: 2017Q3

REPORT INFORMATION
  Report Type: Spontaneous
  Country: US (occurrence: US)
  Receive Date: 20170911
  Receipt Date: 20170911
  Transmission Date: 20171128
  Serious: No
  Sender: FDA-Public Use
  Company Number: US-TEVA-778380ACC

PATIENT

DRUGS (1)
  1. VENLAFAXINE HYDROCHLORIDE CAPSULES EXTENDED RELEASE [Suspect]
     Active Substance: VENLAFAXINE HYDROCHLORIDE

REACTIONS (3)
  - Withdrawal syndrome [Unknown]
  - Drug effect decreased [Unknown]
  - Malaise [Unknown]
